FAERS Safety Report 15684014 (Version 1)
Quarter: 2018Q4

REPORT INFORMATION
  Report Type: Spontaneous
  Country: FR (occurrence: FR)
  Receive Date: 20181204
  Receipt Date: 20181204
  Transmission Date: 20190205
  Serious: Yes (Hospitalization)
  Sender: FDA-Public Use
  Company Number: FR-TAKEDA-2018MPI016580

PATIENT
  Age: 11 Year
  Sex: Female
  Weight: 40.5 kg

DRUGS (1)
  1. VELCADE [Suspect]
     Active Substance: BORTEZOMIB
     Indication: ENCEPHALITIS AUTOIMMUNE
     Dosage: UNK
     Route: 042
     Dates: start: 20181002, end: 20181102

REACTIONS (5)
  - Product use in unapproved indication [Unknown]
  - Chalazion [Recovered/Resolved]
  - Rash papular [Recovering/Resolving]
  - Arthritis [Recovering/Resolving]
  - Off label use [Unknown]

NARRATIVE: CASE EVENT DATE: 20181102
